FAERS Safety Report 6847743-8 (Version None)
Quarter: 2010Q3

REPORT INFORMATION
  Report Type: 
  Country: None (occurrence: None)
  Receive Date: 20100716
  Receipt Date: 20100713
  Transmission Date: 20110219
  Serious: Yes (Death, Life-Threatening, Hospitalization, Other)
  Sender: FDA-Public Use
  Company Number: PHHY2009AU49664

PATIENT
  Sex: Male
  Weight: 132.36 kg

DRUGS (9)
  1. CLOZARIL [Suspect]
     Dosage: 400 MG
     Route: 048
     Dates: start: 19950628
  2. CLOZARIL [Suspect]
     Dosage: 550 MG, UNK
  3. AMISULPRIDE [Concomitant]
     Dosage: 200/400 MF TWICE A DAY
     Route: 048
  4. ATORVASTATIN [Concomitant]
     Dosage: 20 MG AT NIGHT
     Route: 048
  5. NEXIUM [Concomitant]
     Dosage: 40 MG AT NIGHT
  6. AUGMENTIN DUO FORTE [Concomitant]
     Dosage: TWICE DAILY
  7. PREDNISOLONE [Concomitant]
     Dosage: 2.5 MG IN THE MORNING
     Route: 048
  8. VALPROATE SODIUM [Concomitant]
     Dosage: 1500 MG AT NIGHT
     Route: 048
  9. NILSTAT [Concomitant]
     Dosage: 1 ML, QD

REACTIONS (9)
  - CHRONIC OBSTRUCTIVE PULMONARY DISEASE [None]
  - DEATH [None]
  - DIABETES MELLITUS [None]
  - HAEMATOCRIT DECREASED [None]
  - HAEMOGLOBIN DECREASED [None]
  - OXYGEN SATURATION DECREASED [None]
  - RED BLOOD CELL COUNT DECREASED [None]
  - RESPIRATORY DEPRESSION [None]
  - TRACHEOSTOMY [None]
